FAERS Safety Report 4862845-3 (Version None)
Quarter: 2005Q4

REPORT INFORMATION
  Report Type: 
  Country: None (occurrence: None)
  Receive Date: 20051221
  Receipt Date: 20051129
  Transmission Date: 20060501
  Serious: Yes (Hospitalization)
  Sender: FDA-Public Use
  Company Number: 2005AP06179

PATIENT
  Age: 72 Year
  Sex: Male

DRUGS (3)
  1. MEROPEN [Suspect]
     Indication: CHOLECYSTITIS
     Route: 041
     Dates: start: 20050717, end: 20050717
  2. SOSEGON [Concomitant]
     Indication: ANALGESIC EFFECT
     Dates: start: 20050717
  3. ATARAX [Concomitant]
     Indication: INSOMNIA
     Dates: start: 20050717

REACTIONS (3)
  - ANAPHYLACTIC SHOCK [None]
  - ASTHMA [None]
  - BRONCHIAL OEDEMA [None]
